FAERS Safety Report 16650787 (Version 7)
Quarter: 2020Q3

REPORT INFORMATION
  Report Type: Other
  Country: CA (occurrence: CA)
  Receive Date: 20190731
  Receipt Date: 20200806
  Transmission Date: 20201102
  Serious: No
  Sender: FDA-Public Use
  Company Number: CA-ROCHE-2363767

PATIENT
  Sex: Male

DRUGS (8)
  1. DETROL LA [Concomitant]
     Active Substance: TOLTERODINE TARTRATE
     Dosage: 4 MG ONCE DAILY ;ONGOING: YES
  2. LASIX [Concomitant]
     Active Substance: FUROSEMIDE
  3. BACLOFEN. [Concomitant]
     Active Substance: BACLOFEN
     Dosage: 10 TWICE A DAY ;ONGOING: YES
  4. TERAZOSIN [Concomitant]
     Active Substance: TERAZOSIN HYDROCHLORIDE
     Dosage: 5 MG 2 AT BEDTIME ;ONGOING: YES
  5. OCREVUS [Suspect]
     Active Substance: OCRELIZUMAB
     Indication: PRIMARY PROGRESSIVE MULTIPLE SCLEROSIS
     Dosage: 300 MG AT DAY 0 AND 14, THEN 600 MG EVERY 6 MONTH
     Route: 042
     Dates: start: 20190711
  6. KEPPRA [Concomitant]
     Active Substance: LEVETIRACETAM
     Dosage: 250 MG 1 AT NOON AND 2 AT MIDNIGHT ;ONGOING: YES
  7. FINASTERIDE. [Concomitant]
     Active Substance: FINASTERIDE
     Dosage: 5 MG ONCE AT BEDTIME ;ONGOING: YES
  8. DIAZEPAM. [Concomitant]
     Active Substance: DIAZEPAM
     Dosage: 5 MG AT BEDTIME ;ONGOING: YES

REACTIONS (12)
  - Rash [Recovering/Resolving]
  - Petechiae [Recovering/Resolving]
  - Flushing [Recovering/Resolving]
  - Fatigue [Unknown]
  - Sleep disorder [Recovered/Resolved]
  - Herpes zoster [Unknown]
  - Fluid retention [Recovered/Resolved]
  - Varicella [Unknown]
  - Skin disorder [Recovered/Resolved]
  - Acne [Recovering/Resolving]
  - Chills [Unknown]
  - Gait disturbance [Not Recovered/Not Resolved]
